FAERS Safety Report 24010040 (Version 1)
Quarter: 2024Q2

REPORT INFORMATION
  Report Type: Spontaneous
  Country: GB (occurrence: GB)
  Receive Date: 20240625
  Receipt Date: 20240625
  Transmission Date: 20240716
  Serious: Yes (Other)
  Sender: FDA-Public Use
  Company Number: GB-VERTEX PHARMACEUTICALS-2024-010353

PATIENT
  Sex: Male

DRUGS (1)
  1. ELEXACAFTOR\IVACAFTOR\TEZACAFTOR [Suspect]
     Active Substance: ELEXACAFTOR\IVACAFTOR\TEZACAFTOR
     Indication: Cystic fibrosis
     Dosage: TAKE ONE TABLET (75 MG IVA/ 50 MG TEZA/ 100MG ELEXA) IN EVENING
     Route: 048

REACTIONS (2)
  - Hypospadias [Unknown]
  - Hernia [Unknown]

NARRATIVE: CASE EVENT DATE: 20240601
